FAERS Safety Report 15884172 (Version 1)
Quarter: 2019Q1

REPORT INFORMATION
  Report Type: Spontaneous
  Country: FR (occurrence: FR)
  Receive Date: 20190129
  Receipt Date: 20190129
  Transmission Date: 20190417
  Serious: Yes (Life-Threatening)
  Sender: FDA-Public Use
  Company Number: FR-PFIZER INC-2019034893

PATIENT
  Age: 64 Year
  Sex: Female

DRUGS (2)
  1. TERCIAN [CYAMEMAZINE TARTRATE] [Suspect]
     Active Substance: CYAMEMAZINE
     Dosage: 1200 MG, UNK
     Route: 048
     Dates: start: 20181121, end: 20181121
  2. XANAX [Suspect]
     Active Substance: ALPRAZOLAM
     Dosage: 7.5 MG, UNK
     Route: 048
     Dates: start: 20181121, end: 20181121

REACTIONS (4)
  - Hypoxia [Recovered/Resolved]
  - Hypotension [Recovered/Resolved]
  - Coma [Recovered/Resolved]
  - Poisoning deliberate [Unknown]

NARRATIVE: CASE EVENT DATE: 20181121
